FAERS Safety Report 6839815-9 (Version None)
Quarter: 2010Q3

REPORT INFORMATION
  Report Type: 
  Country: None (occurrence: None)
  Receive Date: 20100714
  Receipt Date: 20100630
  Transmission Date: 20110219
  Serious: Yes (Other)
  Sender: FDA-Public Use
  Company Number: US-BAYER-201026974NA

PATIENT
  Age: 28 Year
  Sex: Female

DRUGS (1)
  1. MIRENA [Suspect]
     Indication: CONTRACEPTION
     Route: 015
     Dates: start: 20091101, end: 20100512

REACTIONS (4)
  - ABORTION SPONTANEOUS [None]
  - MENORRHAGIA [None]
  - MENSTRUATION DELAYED [None]
  - PREGNANCY [None]
